FAERS Safety Report 5481875-4 (Version None)
Quarter: 2007Q4

REPORT INFORMATION
  Report Type: 
  Country: None (occurrence: None)
  Receive Date: 20071010
  Receipt Date: 20071001
  Transmission Date: 20080405
  Serious: Yes (Hospitalization)
  Sender: FDA-Public Use
  Company Number: CH-ABBOTT-05P-151-0318037-00

PATIENT
  Sex: Male
  Weight: 59.1 kg

DRUGS (19)
  1. RITONAVIR [Suspect]
     Indication: HIV INFECTION
     Route: 048
     Dates: start: 20011001
  2. RITONAVIR [Suspect]
     Dates: start: 20040824
  3. RITONAVIR [Suspect]
     Dates: start: 20050404, end: 20051109
  4. RITONAVIR [Suspect]
     Dates: start: 20050824
  5. TMC114 [Concomitant]
     Indication: HIV INFECTION
     Route: 065
     Dates: start: 20040824, end: 20050403
  6. TMC114 [Concomitant]
     Dates: start: 20050404, end: 20051109
  7. DIDANOSINE [Concomitant]
     Indication: DRUG USE FOR UNKNOWN INDICATION
     Route: 048
     Dates: start: 20040424
  8. DIDANOSINE [Concomitant]
     Dates: start: 20011001
  9. TENOFOVIR [Concomitant]
     Indication: HIV INFECTION
     Route: 048
     Dates: start: 20050824
  10. LAMIVUDINE [Concomitant]
     Indication: HIV INFECTION
     Route: 048
     Dates: start: 20011001
  11. LAMIVUDINE [Concomitant]
     Route: 048
     Dates: start: 20050910
  12. PRAVASTATIN [Concomitant]
     Indication: HYPERLIPIDAEMIA
     Route: 048
  13. BACTRIM [Concomitant]
     Indication: ANTIBIOTIC PROPHYLAXIS
     Route: 048
  14. SPIRONOLACTONE [Concomitant]
     Indication: DRUG USE FOR UNKNOWN INDICATION
  15. TORSEMIDE [Concomitant]
     Indication: DRUG USE FOR UNKNOWN INDICATION
  16. ESOMEPRAZOLE MAGNESIUM [Concomitant]
     Indication: DRUG USE FOR UNKNOWN INDICATION
  17. PROPRANOLOL HYDROCHLORIDE [Concomitant]
     Indication: DRUG USE FOR UNKNOWN INDICATION
  18. LAMIVUDINE [Concomitant]
  19. FUZEON [Concomitant]
     Indication: HIV INFECTION
     Route: 058

REACTIONS (22)
  - ASCITES [None]
  - BILE DUCT OBSTRUCTION [None]
  - BLADDER PAIN [None]
  - CYTOMEGALOVIRUS ANTIBODY POSITIVE [None]
  - DEAFNESS UNILATERAL [None]
  - DRUG TOXICITY [None]
  - EAR DISCOMFORT [None]
  - GALLBLADDER DISORDER [None]
  - HAEMANGIOMA [None]
  - HEPATIC CIRRHOSIS [None]
  - HEPATIC FAILURE [None]
  - HEPATIC NECROSIS [None]
  - HEPATITIS A ANTIBODY POSITIVE [None]
  - LIVER DISORDER [None]
  - LOCAL SWELLING [None]
  - PAIN IN EXTREMITY [None]
  - PLEURAL ADHESION [None]
  - PLEURAL EFFUSION [None]
  - PORTAL HYPERTENSION [None]
  - RENAL PAIN [None]
  - SPIDER NAEVUS [None]
  - VARICES OESOPHAGEAL [None]
